FAERS Safety Report 14563152 (Version 1)
Quarter: 2018Q1

REPORT INFORMATION
  Report Type: Spontaneous
  Country: US (occurrence: US)
  Receive Date: 20180222
  Receipt Date: 20180222
  Transmission Date: 20180509
  Serious: No
  Sender: FDA-Public Use
  Company Number: US-TEVA-2018-US-855024

PATIENT
  Age: 76 Year
  Sex: Female
  Weight: 58.96 kg

DRUGS (3)
  1. CETIRIZINE W/PSEUDOEPHEDRINE [Suspect]
     Active Substance: CETIRIZINE HYDROCHLORIDE\PSEUDOEPHEDRINE HYDROCHLORIDE
     Indication: SINUS CONGESTION
     Dosage: 2 DOSAGE FORMS DAILY; 1 DF=PSEUDOEPHEDRINE HYDROCHLORIDE 120 MG/CETIRIZINE HYDROCHOLRIDE 5 MG
     Route: 048
     Dates: start: 20180119, end: 20180121
  2. VITAMINS [Concomitant]
     Active Substance: VITAMINS
  3. APRISO [Concomitant]
     Active Substance: MESALAMINE

REACTIONS (3)
  - Dizziness [Recovered/Resolved]
  - Drug administered to patient of inappropriate age [Recovered/Resolved]
  - Insomnia [Recovered/Resolved]

NARRATIVE: CASE EVENT DATE: 20180119
